FAERS Safety Report 5458062-9 (Version None)
Quarter: 2007Q3

REPORT INFORMATION
  Report Type: 
  Country: None (occurrence: None)
  Receive Date: 20070919
  Receipt Date: 20070914
  Transmission Date: 20080115
  Serious: Yes (Life-Threatening, Other)
  Sender: FDA-Public Use
  Company Number: PHHO2007FR14575

PATIENT
  Age: 61 Year
  Sex: Male

DRUGS (6)
  1. HYDREA [Concomitant]
  2. CYTARABINE [Concomitant]
  3. GLEEVEC [Suspect]
     Indication: CHRONIC MYELOID LEUKAEMIA
     Route: 048
     Dates: start: 20050105
  4. IMODIUM [Concomitant]
  5. ALLOPURINOL [Concomitant]
  6. TAHOR [Concomitant]

REACTIONS (4)
  - ADENOCARCINOMA [None]
  - BONE PAIN [None]
  - METASTASES TO BONE [None]
  - METASTASIS [None]
